FAERS Safety Report 9825659 (Version 1)
Quarter: 2013Q4

REPORT INFORMATION
  Report Type: Spontaneous
  Country: US (occurrence: None)
  Receive Date: 20131028
  Receipt Date: 20131028
  Transmission Date: 20140711
  Serious: Yes (Other)
  Sender: FDA-Public Use
  Company Number: 2013US002372

PATIENT
  Age: 50 Year
  Sex: Male

DRUGS (1)
  1. ICLUSIG [Suspect]
     Indication: CHRONIC MYELOID LEUKAEMIA
     Dosage: 45 MG, QD, ORAL
     Route: 048
     Dates: start: 20130801

REACTIONS (6)
  - Chapped lips [None]
  - Blood glucose increased [None]
  - Hypertension [None]
  - Rash [None]
  - Fatigue [None]
  - Constipation [None]
